FAERS Safety Report 4391706-1 (Version None)
Quarter: 2004Q3

REPORT INFORMATION
  Report Type: 
  Country: None (occurrence: None)
  Receive Date: 20040701
  Receipt Date: 20040618
  Transmission Date: 20050211
  Serious: Yes (Other)
  Sender: FDA-Public Use
  Company Number: 2004041446

PATIENT
  Sex: Female
  Weight: 72.5755 kg

DRUGS (4)
  1. ZOLOFT [Suspect]
     Indication: ANXIETY
     Dates: start: 20040101
  2. DONEPEZIL HCL [Suspect]
     Indication: ANXIETY
     Dates: start: 20040101
  3. MUPIROCIN (MUPIROCIN) [Concomitant]
  4. ATENOLOL [Concomitant]

REACTIONS (1)
  - CEREBROVASCULAR ACCIDENT [None]
